FAERS Safety Report 4562913-X (Version None)
Quarter: 2005Q1

REPORT INFORMATION
  Report Type: 
  Country: None (occurrence: None)
  Receive Date: 20050121
  Receipt Date: 20050104
  Transmission Date: 20050727
  Serious: No
  Sender: FDA-Public Use
  Company Number: DE_041014494

PATIENT
  Age: 64 Year
  Sex: Female
  Weight: 84.8226 kg

DRUGS (1)
  1. YENTREVE (DULOXETINE HYDROCHLORIDE) [Suspect]
     Indication: STRESS INCONTINENCE
     Dosage: 40MG/2 DAY
     Dates: start: 20040914, end: 20040920

REACTIONS (2)
  - CENTRAL-ALVEOLAR HYPOVENTILATION [None]
  - CHRONIC OBSTRUCTIVE PULMONARY DISEASE [None]
